FAERS Safety Report 18064089 (Version 11)
Quarter: 2021Q3

REPORT INFORMATION
  Report Type: Spontaneous
  Country: US (occurrence: US)
  Receive Date: 20200724
  Receipt Date: 20210831
  Transmission Date: 20211014
  Serious: Yes (Hospitalization, Other)
  Sender: FDA-Public Use
  Company Number: US-TEVA-2020-US-1806332

PATIENT
  Age: 60 Year
  Sex: Male
  Weight: 147.4 kg

DRUGS (44)
  1. ROPINIROLE. [Concomitant]
     Active Substance: ROPINIROLE
     Dosage: 2 MILLIGRAM BY MOUTH EVERY DAY AT BEDTIME (REQUIP)
     Route: 048
  2. CARTIA XT [Concomitant]
     Active Substance: DILTIAZEM HYDROCHLORIDE
     Route: 065
  3. SINGULAIR [Concomitant]
     Active Substance: MONTELUKAST SODIUM
     Dosage: 10 MG
     Route: 065
  4. METFORMIN HCL [Concomitant]
     Active Substance: METFORMIN HYDROCHLORIDE
     Route: 048
  5. ACETAMINOPHEN. [Concomitant]
     Active Substance: ACETAMINOPHEN
     Indication: PAIN
     Dosage: 650 MG PO EVERY 4 HOURS FOR PAIN
     Route: 048
  6. AMLODIPINE W/VALSARTAN LUPIN [Suspect]
     Active Substance: AMLODIPINE\VALSARTAN
     Indication: HYPERTENSION
     Dosage: 10?320 MG??AMLODIPINE/VALSARTAN LUPIN PHARMACEUTICALS
     Route: 048
     Dates: start: 20150506, end: 20151124
  7. EXFORGE [Suspect]
     Active Substance: AMLODIPINE BESYLATE\VALSARTAN
     Indication: HYPERTENSION
     Dosage: 10 MG?320 MG
     Route: 048
  8. HYDROCODONE?ACETAMINOPHEN [Concomitant]
     Active Substance: ACETAMINOPHEN\HYDROCODONE
     Indication: PAIN
     Dosage: NORCO (5 MG?325 MG) 1 ? 2 TABLET?BY MOUTH EVERY 6 HOURS AS NEEDED,
     Route: 048
  9. HYOSCYAMINE. [Concomitant]
     Active Substance: HYOSCYAMINE
     Indication: MUSCLE SPASMS
     Dosage: (LEVSIN) 0.125 MILLIGRAM BY MOUTH EVERY 6 HOURS AS NEEDED,TAKE 1 TO 2 TABLETS
     Route: 048
  10. HYDROCHLOROTHIAZIDE. [Concomitant]
     Active Substance: HYDROCHLOROTHIAZIDE
     Route: 048
  11. DIAZEPAM. [Concomitant]
     Active Substance: DIAZEPAM
     Indication: MUSCLE SPASMS
     Dosage: 2 MG PO EVERY 4 HOURS
     Route: 048
  12. INDOMETHACIN. [Concomitant]
     Active Substance: INDOMETHACIN
     Dosage: 50 MG
     Route: 065
  13. MELOXICAM. [Concomitant]
     Active Substance: MELOXICAM
     Dosage: 7.5 MG
     Route: 065
  14. METHYLPREDNISOLONE. [Concomitant]
     Active Substance: METHYLPREDNISOLONE
     Dosage: 4 MG
     Route: 065
  15. BABY ASPIRIN [Concomitant]
     Active Substance: ASPIRIN
     Route: 065
     Dates: start: 2010
  16. ZIAC [Concomitant]
     Active Substance: BISOPROLOL FUMARATE\HYDROCHLOROTHIAZIDE
     Dosage: 5/6.25 MG
     Route: 065
     Dates: start: 2008
  17. PERCOCET [Concomitant]
     Active Substance: ACETAMINOPHEN\OXYCODONE HYDROCHLORIDE
     Indication: PAIN
     Dosage: 10 MG?325 MG?1 TAB PO EVERY 4 HOURS
     Route: 048
  18. TAMSULOSIN HCL [Concomitant]
     Active Substance: TAMSULOSIN HYDROCHLORIDE
     Dosage: 0.4 MILLIGRAM BY MOUTH EVERY DAY AT BEDTIME
     Route: 048
  19. NASONEX [Concomitant]
     Active Substance: MOMETASONE FUROATE
     Dosage: 50 MCG/ACTUATION SPRAY
     Route: 065
  20. AMLODIPINE W/VALSARTAN TEVA [Suspect]
     Active Substance: AMLODIPINE\VALSARTAN
     Indication: HYPERTENSION
     Dosage: 10?320 MG, ONE TAB BY MOUTH EVERY DAY
     Route: 048
     Dates: start: 20151125, end: 20181223
  21. VALSARTAN SOLCO [Suspect]
     Active Substance: VALSARTAN
     Indication: HYPERTENSION
     Route: 065
     Dates: start: 20170608, end: 20170906
  22. OLMESARTAN [Concomitant]
     Active Substance: OLMESARTAN
     Route: 065
  23. BISOPROLOL FUMARATE. [Concomitant]
     Active Substance: BISOPROLOL FUMARATE
     Route: 048
  24. PHENTERMINE HCL [Concomitant]
     Active Substance: PHENTERMINE HYDROCHLORIDE
     Dosage: QD AS DIRECTED
     Route: 065
  25. COLORYS [Concomitant]
     Active Substance: COLCHICINE
     Route: 065
  26. CLARINEX [Concomitant]
     Active Substance: DESLORATADINE
     Dosage: 5 MG
     Route: 065
  27. FLUCONAZOLE. [Concomitant]
     Active Substance: FLUCONAZOLE
     Dosage: 150 MG
     Route: 065
  28. MELOXICAM. [Concomitant]
     Active Substance: MELOXICAM
     Dosage: 15 MG
     Route: 065
  29. AMLODIPINE W/VALSARTAN TORRENT [Suspect]
     Active Substance: AMLODIPINE\VALSARTAN
     Indication: HYPERTENSION
     Dosage: 10?320 MG??AMLODIPINE/VALSARTAN TORRENT PHARMACEUTICALS
     Route: 048
     Dates: start: 20160613, end: 20160711
  30. IRBESARTAN. [Concomitant]
     Active Substance: IRBESARTAN
     Route: 065
  31. BISOPROLOL?HYDROCHLORTHIAZIDE [Concomitant]
     Route: 065
  32. FLOMAX [Concomitant]
     Active Substance: TAMSULOSIN HYDROCHLORIDE
     Dosage: 0.4 MG
     Route: 048
  33. CLOTRIMAZOLE AND BETAMETHASONE DIPROPIONATE [Concomitant]
     Active Substance: BETAMETHASONE\BETAMETHASONE DIPROPIONATE\CLOTRIMAZOLE
     Dosage: 1 %?0.05 % TOPICAL CREAM
     Route: 061
  34. PRAMIPEXOLE. [Concomitant]
     Active Substance: PRAMIPEXOLE
     Dosage: 0.25 MG
     Route: 065
  35. OXYCODONE?ACETAMINOPHEN [Concomitant]
     Active Substance: ACETAMINOPHEN\OXYCODONE HYDROCHLORIDE
     Dosage: 10 MG?325 MG
     Route: 065
  36. AMLODIPINE W/VALSARTAN PAR [Suspect]
     Active Substance: AMLODIPINE\VALSARTAN
     Indication: HYPERTENSION
     Dosage: 10?320 MG??AMLODIPINE/VALSARTAN PAR PHARMACEUTICALS
     Route: 048
     Dates: start: 20141208, end: 20150505
  37. NIFEDIPINE. [Concomitant]
     Active Substance: NIFEDIPINE
     Dosage: (PROCARDIA XL)120 MILLIGRAM BY MOUTH EVERY MORNING
     Route: 048
  38. ALLOPURINOL. [Concomitant]
     Active Substance: ALLOPURINOL
     Route: 048
  39. CARDIZEM [Concomitant]
     Active Substance: DILTIAZEM HYDROCHLORIDE
     Route: 048
  40. XANAX [Concomitant]
     Active Substance: ALPRAZOLAM
     Route: 048
  41. KETOROLAC [Concomitant]
     Active Substance: KETOROLAC TROMETHAMINE
     Dosage: 30MG/ML 15 MG IV
     Route: 042
  42. LORTAB [Concomitant]
     Active Substance: ACETAMINOPHEN\HYDROCODONE BITARTRATE
     Indication: PAIN
     Dosage: 5 MG?500 MG TABLET TAKE 1 TABLET BY ORAL ROUTE EVERY 4 ? 6 HOURS AS NEEDED FOR PAIN
     Route: 048
  43. REQUIP [Concomitant]
     Active Substance: ROPINIROLE HYDROCHLORIDE
     Route: 048
  44. CELEBREX [Concomitant]
     Active Substance: CELECOXIB
     Dosage: 200 MG CAPSULE
     Route: 048

REACTIONS (2)
  - Bladder cancer [Recovered/Resolved]
  - Rectal cancer [Recovered/Resolved]
